FAERS Safety Report 8586427-5 (Version None)
Quarter: 2012Q3

REPORT INFORMATION
  Report Type: 
  Country: None (occurrence: None)
  Receive Date: 20120810
  Receipt Date: 20120806
  Transmission Date: 20120928
  Serious: Yes (Other)
  Sender: FDA-Public Use
  Company Number: US-BAYER-2012-081277

PATIENT
  Age: 18 Year
  Sex: Male
  Weight: 118 kg

DRUGS (3)
  1. ALEVE (CAPLET) [Suspect]
     Indication: PYREXIA
     Dosage: 2 DF, UNK
     Route: 048
     Dates: start: 20120806
  2. ALEVE (CAPLET) [Suspect]
     Indication: MUSCLE SPASMS
  3. BISMUTH SUBSALICYLATE [Concomitant]

REACTIONS (2)
  - MELAENA [None]
  - GASTRIC ULCER HAEMORRHAGE [None]
